FAERS Safety Report 5081722-9 (Version None)
Quarter: 2006Q3

REPORT INFORMATION
  Report Type: 
  Country: None (occurrence: None)
  Receive Date: 20060816
  Receipt Date: 20060801
  Transmission Date: 20061208
  Serious: Yes (Hospitalization)
  Sender: FDA-Public Use
  Company Number: AR-JNJFOC-20060705129

PATIENT
  Age: 9 Year
  Sex: Male

DRUGS (2)
  1. TOPAMAC [Suspect]
     Indication: EPILEPSY
     Route: 065
  2. CLONAZEPAN [Concomitant]

REACTIONS (2)
  - GASTRITIS EROSIVE [None]
  - OESOPHAGITIS [None]
